FAERS Safety Report 13526734 (Version 2)
Quarter: 2017Q2

REPORT INFORMATION
  Report Type: Report from Study
  Country: CO (occurrence: CO)
  Receive Date: 20170509
  Receipt Date: 20170530
  Transmission Date: 20170830
  Serious: Yes (Hospitalization)
  Sender: FDA-Public Use
  Company Number: PHHY2017CO066937

PATIENT
  Sex: Female
  Weight: 67 kg

DRUGS (1)
  1. REVOLADE [Suspect]
     Active Substance: ELTROMBOPAG
     Indication: IMMUNE THROMBOCYTOPENIC PURPURA
     Dosage: 25 MG, Q12H
     Route: 048
     Dates: start: 20150826

REACTIONS (2)
  - Blood pressure increased [Unknown]
  - Fear [Unknown]
